FAERS Safety Report 11418689 (Version 1)
Quarter: 2015Q3

REPORT INFORMATION
  Report Type: Spontaneous
  Country: US (occurrence: US)
  Receive Date: 20150826
  Receipt Date: 20150826
  Transmission Date: 20151125
  Serious: Yes (Hospitalization, Other)
  Sender: FDA-Public Use
  Company Number: US-ROCHE-1623687

PATIENT
  Sex: Male

DRUGS (1)
  1. XELODA [Suspect]
     Active Substance: CAPECITABINE
     Indication: OESOPHAGEAL CARCINOMA
     Dosage: 3500 MG DAILY, 14 DAYS ON, 7 DAYS OFF
     Route: 048

REACTIONS (11)
  - Skin toxicity [Not Recovered/Not Resolved]
  - Skin exfoliation [Unknown]
  - Staphylococcal infection [Unknown]
  - Mouth ulceration [Unknown]
  - Skin discolouration [Unknown]
  - Overdose [Unknown]
  - Herpes zoster [Unknown]
  - Erythema [Unknown]
  - Blister [Unknown]
  - Dermatitis [Unknown]
  - Rectal ulcer [Unknown]
